FAERS Safety Report 4371460-X (Version None)
Quarter: 2004Q2

REPORT INFORMATION
  Report Type: 
  Country: None (occurrence: None)
  Receive Date: 20040602
  Receipt Date: 20040520
  Transmission Date: 20050107
  Serious: Yes (Death, Other)
  Sender: FDA-Public Use
  Company Number: 2004023066

PATIENT
  Age: 48 Year
  Sex: Female
  Weight: 57.1532 kg

DRUGS (4)
  1. GEODON [Suspect]
     Indication: EATING DISORDER SYMPTOM
     Dosage: 160 MG (BID), ORAL
     Route: 048
     Dates: start: 20011113, end: 20040301
  2. FLUOXETINE HCL [Concomitant]
  3. DIAZEPAM [Concomitant]
  4. ARIPIPRAZOLE (ARIPIPRAZOLE) [Concomitant]

REACTIONS (2)
  - ARRHYTHMIA [None]
  - SUICIDE ATTEMPT [None]
